FAERS Safety Report 17509228 (Version 1)
Quarter: 2020Q1

REPORT INFORMATION
  Report Type: Spontaneous
  Country: US (occurrence: US)
  Receive Date: 20200225
  Receipt Date: 20200225
  Transmission Date: 20200409
  Serious: Yes (Other)
  Sender: FDA-Public Use
  Company Number: None

PATIENT
  Age: 55 Year
  Sex: Female
  Weight: 59.4 kg

DRUGS (14)
  1. ATEZOLIZUMAB. [Suspect]
     Active Substance: ATEZOLIZUMAB
     Indication: BREAST CANCER METASTATIC
     Dosage: ?          OTHER FREQUENCY:Q3WEEKS;?
     Dates: start: 20190625, end: 20191008
  2. BUPROPION. [Concomitant]
     Active Substance: BUPROPION
  3. LIDOCAINE. [Concomitant]
     Active Substance: LIDOCAINE
  4. MIRTAZAPINE. [Concomitant]
     Active Substance: MIRTAZAPINE
  5. TRASTUZUMAB. [Suspect]
     Active Substance: TRASTUZUMAB
     Indication: BREAST CANCER METASTATIC
     Dosage: ?          OTHER FREQUENCY:QWEEK;?
     Dates: start: 20190625, end: 20191008
  6. CHOLECALOIFEROL [Concomitant]
  7. LEVOCARNITINE. [Concomitant]
     Active Substance: LEVOCARNITINE
  8. LORAZEPAM. [Concomitant]
     Active Substance: LORAZEPAM
  9. MAGNESIUM ORAL [Concomitant]
  10. GABAPENTIN. [Concomitant]
     Active Substance: GABAPENTIN
  11. THC [Concomitant]
     Active Substance: DRONABINOL
  12. DEXAMETHASONE. [Concomitant]
     Active Substance: DEXAMETHASONE
  13. FLUOROURACIL. [Concomitant]
     Active Substance: FLUOROURACIL
  14. CMPHOR-MENTHOL [Concomitant]

REACTIONS (3)
  - Hemiparesis [None]
  - Fall [None]
  - Asthenia [None]

NARRATIVE: CASE EVENT DATE: 20191010
